FAERS Safety Report 8361157-3 (Version None)
Quarter: 2012Q2

REPORT INFORMATION
  Report Type: 
  Country: None (occurrence: None)
  Receive Date: 20120515
  Receipt Date: 20120504
  Transmission Date: 20120825
  Serious: Yes (Hospitalization)
  Sender: FDA-Public Use
  Company Number: FR-ROCHE-1065971

PATIENT
  Age: 73 Year
  Sex: Male

DRUGS (3)
  1. TERCIAN [Suspect]
     Indication: DELIRIUM TREMENS
     Dates: start: 20110609, end: 20110609
  2. VALIUM [Suspect]
     Indication: DELIRIUM TREMENS
     Dates: start: 20110609, end: 20110609
  3. VALIUM [Suspect]

REACTIONS (1)
  - CARDIO-RESPIRATORY ARREST [None]
